FAERS Safety Report 22010684 (Version 1)
Quarter: 2023Q1

REPORT INFORMATION
  Report Type: Other
  Country: PT (occurrence: PT)
  Receive Date: 20230220
  Receipt Date: 20230220
  Transmission Date: 20230418
  Serious: Yes (Other)
  Sender: FDA-Public Use
  Company Number: PT-CELLTRION INC.-2022PT013071

PATIENT

DRUGS (4)
  1. HERZUMA [Suspect]
     Active Substance: TRASTUZUMAB-PKRB
     Indication: Product used for unknown indication
     Dosage: UNK
     Dates: start: 20220621
  2. CARBOPLATIN [Concomitant]
     Active Substance: CARBOPLATIN
  3. PERJETA [Concomitant]
     Active Substance: PERTUZUMAB
  4. DOCETAXEL [Concomitant]
     Active Substance: DOCETAXEL

REACTIONS (9)
  - Neutropenia [Not Recovered/Not Resolved]
  - Neuropathy peripheral [Recovering/Resolving]
  - Arthralgia [Recovering/Resolving]
  - Anaemia [Not Recovered/Not Resolved]
  - Asthenia [Recovering/Resolving]
  - Nausea [Recovering/Resolving]
  - Cough [Not Recovered/Not Resolved]
  - Mucosal inflammation [Recovering/Resolving]
  - Rhinorrhoea [Not Recovered/Not Resolved]

NARRATIVE: CASE EVENT DATE: 20220623
